FAERS Safety Report 9492775 (Version 1)
Quarter: 2013Q3

REPORT INFORMATION
  Report Type: Report from Study
  Country: US (occurrence: US)
  Receive Date: 20130830
  Receipt Date: 20130830
  Transmission Date: 20140515
  Serious: Yes (Hospitalization)
  Sender: FDA-Public Use
  Company Number: US-ABBOTT-13P-163-1138412-00

PATIENT
  Age: 48 Year
  Sex: Female

DRUGS (9)
  1. HUMIRA [Suspect]
     Indication: SARCOIDOSIS
     Dates: start: 201201, end: 201208
  2. HUMIRA [Suspect]
     Dates: start: 201302
  3. LOSARTAN [Concomitant]
     Indication: PRODUCT USED FOR UNKNOWN INDICATION
     Dosage: 100MG DAILY
  4. LEVOXYL [Concomitant]
     Indication: PRODUCT USED FOR UNKNOWN INDICATION
     Dosage: 100MCG DAILY
  5. ZYRTEC [Concomitant]
     Indication: PRODUCT USED FOR UNKNOWN INDICATION
     Dosage: DAILY
  6. WAFARIN [Concomitant]
     Indication: PRODUCT USED FOR UNKNOWN INDICATION
     Dosage: 5MG DAILY
  7. LANTUS [Concomitant]
     Indication: PRODUCT USED FOR UNKNOWN INDICATION
     Dosage: AT SLEEP
  8. NOVALOG INSULIN [Concomitant]
     Indication: PRODUCT USED FOR UNKNOWN INDICATION
     Dosage: DAILY
  9. STEROID [Concomitant]
     Indication: PULMONARY SARCOIDOSIS
     Dosage: MG DAILY
     Route: 055

REACTIONS (14)
  - Malaise [Not Recovered/Not Resolved]
  - Injection site reaction [Unknown]
  - Sarcoidosis [Unknown]
  - Clostridium difficile infection [Unknown]
  - Fatigue [Unknown]
  - Nausea [Unknown]
  - Dizziness [Unknown]
  - Neuralgia [Unknown]
  - Malaise [Unknown]
  - Neuropathy peripheral [Unknown]
  - Renal failure [Unknown]
  - Drug effect decreased [Unknown]
  - Sarcoidosis [Unknown]
  - Product quality issue [Unknown]
